FAERS Safety Report 4549507-7 (Version None)
Quarter: 2005Q1

REPORT INFORMATION
  Report Type: 
  Country: None (occurrence: None)
  Receive Date: 20050106
  Receipt Date: 20041221
  Transmission Date: 20050727
  Serious: Yes (Life-Threatening, Hospitalization)
  Sender: FDA-Public Use
  Company Number: DE_990601248

PATIENT
  Age: 68 Year
  Sex: Male

DRUGS (5)
  1. ZYPREXA [Suspect]
     Indication: SCHIZOPHRENIA
     Dates: start: 19980209, end: 19990212
  2. TREMARIT (METIXENE HYDROCHLORIDE) [Concomitant]
  3. ADALAT [Concomitant]
  4. HALDOL [Concomitant]
  5. CEPHALEXIN [Concomitant]

REACTIONS (27)
  - ACTIVITIES OF DAILY LIVING IMPAIRED [None]
  - ASPIRATION [None]
  - BACTERIAL INFECTION [None]
  - BRONCHIAL INFECTION [None]
  - CEREBRAL ATROPHY [None]
  - CONDITION AGGRAVATED [None]
  - DELUSION [None]
  - DRUG RESISTANCE [None]
  - FACIAL BONES FRACTURE [None]
  - FALL [None]
  - GRANULOCYTE COUNT DECREASED [None]
  - HAEMATOTOXICITY [None]
  - HYPERKINESIA [None]
  - NEUROLEPTIC MALIGNANT SYNDROME [None]
  - NEUTROPENIA [None]
  - OVERDOSE [None]
  - PARAESTHESIA [None]
  - PARANOIA [None]
  - PARKINSONISM [None]
  - PNEUMONIA [None]
  - PSYCHOTIC DISORDER [None]
  - RESPIRATORY FAILURE [None]
  - SOCIAL AVOIDANT BEHAVIOUR [None]
  - THERAPY NON-RESPONDER [None]
  - TREMOR [None]
  - WHITE BLOOD CELL COUNT DECREASED [None]
  - WOUND [None]
